FAERS Safety Report 22323989 (Version 3)
Quarter: 2023Q2

REPORT INFORMATION
  Report Type: Other
  Country: US (occurrence: None)
  Receive Date: 20230516
  Receipt Date: 20230609
  Transmission Date: 20230721
  Serious: No
  Sender: FDA-Public Use
  Company Number: US-ROCHE-3350465

PATIENT
  Age: 38 Year
  Sex: Female

DRUGS (1)
  1. OCREVUS [Suspect]
     Active Substance: OCRELIZUMAB
     Indication: Relapsing multiple sclerosis
     Dosage: THEN 600 MG EVERY 6 MONTH, DATE OF TREATMENT: 15/FEB/2021, 01/MAR/2021,  03/SEP/2021, 04/MAR/2022,
     Route: 042

REACTIONS (1)
  - COVID-19 [Recovered/Resolved]
